FAERS Safety Report 5834849-5 (Version None)
Quarter: 2008Q3

REPORT INFORMATION
  Report Type: 
  Country: None (occurrence: None)
  Receive Date: 20080725
  Receipt Date: 20070801
  Transmission Date: 20090109
  Serious: Yes (Hospitalization, Other)
  Sender: FDA-Public Use
  Company Number: MOBN20070003

PATIENT
  Age: 41 Year
  Sex: Female
  Weight: 40.8237 kg

DRUGS (1)
  1. MOBAN [Suspect]
     Dates: start: 20001001

REACTIONS (1)
  - NEUROLEPTIC MALIGNANT SYNDROME [None]
